FAERS Safety Report 8038377-0 (Version None)
Quarter: 2012Q1

REPORT INFORMATION
  Report Type: 
  Country: None (occurrence: None)
  Receive Date: 20120111
  Receipt Date: 20111209
  Transmission Date: 20120608
  Serious: No
  Sender: FDA-Public Use
  Company Number: US-AMGEN-USASP2011031687

PATIENT
  Age: 19 Year
  Sex: Female

DRUGS (2)
  1. ENBREL [Suspect]
     Indication: ANKYLOSING SPONDYLITIS
     Dosage: 50 MG, QWK
     Dates: start: 20101215, end: 20111001
  2. HUMIRA [Concomitant]
     Indication: ANKYLOSING SPONDYLITIS

REACTIONS (10)
  - INJECTION SITE ERYTHEMA [None]
  - INJECTION SITE DISCOLOURATION [None]
  - INJECTION SITE PRURITUS [None]
  - HYPOAESTHESIA [None]
  - FATIGUE [None]
  - ASTHENIA [None]
  - SINUSITIS [None]
  - OEDEMA PERIPHERAL [None]
  - LUPUS-LIKE SYNDROME [None]
  - INDURATION [None]
